FAERS Safety Report 4300395-3 (Version None)
Quarter: 2004Q1

REPORT INFORMATION
  Report Type: 
  Country: None (occurrence: None)
  Receive Date: 20040218
  Receipt Date: 20040205
  Transmission Date: 20041129
  Serious: Yes (Death, Other)
  Sender: FDA-Public Use
  Company Number: 2003118285

PATIENT
  Age: 40 Year
  Sex: Female

DRUGS (2)
  1. GEODON [Suspect]
     Indication: ACUTE PSYCHOSIS
     Dosage: 10 MG, INTRAMUSCULAR
     Route: 030
     Dates: start: 20031005
  2. GEODON [Suspect]
     Indication: AGITATION
     Dosage: 10 MG, INTRAMUSCULAR
     Route: 030
     Dates: start: 20031005

REACTIONS (3)
  - ARRHYTHMIA [None]
  - CARDIAC MYXOMA [None]
  - MITRAL VALVE PROLAPSE [None]
